FAERS Safety Report 10213365 (Version 1)
Quarter: 2014Q2

REPORT INFORMATION
  Report Type: Spontaneous
  Country: JP (occurrence: None)
  Receive Date: 20140529
  Receipt Date: 20140529
  Transmission Date: 20141212
  Serious: Yes (Death)
  Sender: FDA-Public Use
  Company Number: JP-015800

PATIENT
  Age: 86 Year
  Sex: Male

DRUGS (7)
  1. GONAX [Suspect]
     Indication: PROSTATE CANCER
     Route: 058
     Dates: start: 20131028, end: 20131028
  2. SEROQUEL [Concomitant]
  3. MICARDIS [Concomitant]
  4. ZOMETA [Concomitant]
  5. WARFARIN [Concomitant]
  6. RISPERDAL [Concomitant]
  7. URIEF [Concomitant]

REACTIONS (1)
  - Aortic rupture [None]
